FAERS Safety Report 14017480 (Version 1)
Quarter: 2017Q3

REPORT INFORMATION
  Report Type: Spontaneous
  Country: US (occurrence: US)
  Receive Date: 20170927
  Receipt Date: 20170927
  Transmission Date: 20171128
  Serious: No
  Sender: FDA-Public Use
  Company Number: US-GLAXOSMITHKLINE-US2017GSK148313

PATIENT
  Sex: Female

DRUGS (14)
  1. GLIMEPIRIDE. [Concomitant]
     Active Substance: GLIMEPIRIDE
  2. XANAX [Concomitant]
     Active Substance: ALPRAZOLAM
  3. MORPHINE [Concomitant]
     Active Substance: MORPHINE
  4. SIMVASTATIN. [Concomitant]
     Active Substance: SIMVASTATIN
  5. BENLYSTA [Suspect]
     Active Substance: BELIMUMAB
     Indication: SYSTEMIC LUPUS ERYTHEMATOSUS
     Dosage: UNK UNK, CYC
     Dates: start: 20170626
  6. PAROXETINE. [Concomitant]
     Active Substance: PAROXETINE
  7. ALLOPURINOL. [Concomitant]
     Active Substance: ALLOPURINOL
  8. METFORMIN [Concomitant]
     Active Substance: METFORMIN HYDROCHLORIDE
  9. PLAQUENIL [Concomitant]
     Active Substance: HYDROXYCHLOROQUINE SULFATE
  10. PRILOSEC [Concomitant]
     Active Substance: OMEPRAZOLE MAGNESIUM
  11. LISINOPRIL. [Concomitant]
     Active Substance: LISINOPRIL
  12. LYRICA [Concomitant]
     Active Substance: PREGABALIN
  13. NORVASC [Concomitant]
     Active Substance: AMLODIPINE BESYLATE
  14. SYNTHROID [Concomitant]
     Active Substance: LEVOTHYROXINE SODIUM

REACTIONS (2)
  - Crying [Not Recovered/Not Resolved]
  - Depression [Not Recovered/Not Resolved]
